FAERS Safety Report 21488978 (Version 3)
Quarter: 2022Q4

REPORT INFORMATION
  Report Type: Spontaneous
  Country: NP (occurrence: NP)
  Receive Date: 20221021
  Receipt Date: 20221031
  Transmission Date: 20230112
  Serious: Yes (Other)
  Sender: FDA-Public Use
  Company Number: None

PATIENT
  Sex: Male

DRUGS (2)
  1. PREDNISOLONE [Suspect]
     Active Substance: PREDNISOLONE
     Indication: Arthralgia
     Dosage: 10 MILLIGRAM, BID
     Route: 048
  2. ACECLOFENAC [Concomitant]
     Active Substance: ACECLOFENAC
     Indication: Arthralgia
     Dosage: 100 MILLIGRAM, BID
     Route: 065

REACTIONS (10)
  - Hyperlipidaemia [Unknown]
  - Testicular atrophy [Unknown]
  - Intentional product misuse [Unknown]
  - Spinal osteoarthritis [Unknown]
  - Spinal fracture [Unknown]
  - Osteoarthritis [Unknown]
  - Cushing^s syndrome [Recovered/Resolved]
  - Osteoporosis [Unknown]
  - Cellulitis [Recovered/Resolved]
  - Bacterial infection [Unknown]
